FAERS Safety Report 24108070 (Version 1)
Quarter: 2024Q3

REPORT INFORMATION
  Report Type: Report from Study
  Country: US (occurrence: None)
  Receive Date: 20240718
  Receipt Date: 20240718
  Transmission Date: 20241017
  Serious: Yes (Hospitalization, Other)
  Sender: ASTRAZENECA
  Company Number: 2020SF30640

PATIENT
  Age: 22003 Day
  Sex: Female
  Weight: 116.1 kg

DRUGS (23)
  1. SYMBICORT [Suspect]
     Active Substance: BUDESONIDE\FORMOTEROL FUMARATE DIHYDRATE
     Indication: Bronchitis chronic
     Dosage: 80/4.5 MG 2 INHALATION TWO TIMES A DAY
     Route: 055
  2. SYMBICORT [Suspect]
     Active Substance: BUDESONIDE\FORMOTEROL FUMARATE DIHYDRATE
     Indication: Asthma
     Dosage: 80/4.5 MG 2 INHALATION TWO TIMES A DAY
     Route: 055
  3. SYMBICORT [Suspect]
     Active Substance: BUDESONIDE\FORMOTEROL FUMARATE DIHYDRATE
     Indication: Bronchitis chronic
     Dosage: 160/4.5 UNKNOWN UNKNOWN
     Route: 055
  4. SYMBICORT [Suspect]
     Active Substance: BUDESONIDE\FORMOTEROL FUMARATE DIHYDRATE
     Indication: Asthma
     Dosage: 160/4.5 UNKNOWN UNKNOWN
     Route: 055
  5. NASONOX [Concomitant]
     Indication: Bronchitis chronic
  6. NASONOX [Concomitant]
     Indication: Asthma
  7. SINGULAIR [Concomitant]
     Active Substance: MONTELUKAST SODIUM
     Indication: Bronchitis chronic
  8. SINGULAIR [Concomitant]
     Active Substance: MONTELUKAST SODIUM
     Indication: Asthma
  9. PROVENTIL [Concomitant]
     Active Substance: ALBUTEROL
     Indication: Bronchitis chronic
  10. PROVENTIL [Concomitant]
     Active Substance: ALBUTEROL
     Indication: Asthma
  11. ATENOLOL [Concomitant]
     Active Substance: ATENOLOL
     Indication: Hypertension
  12. HYDROCHLOROTHIAZIDE\LISINOPRIL [Concomitant]
     Active Substance: HYDROCHLOROTHIAZIDE\LISINOPRIL
     Indication: Hypertension
  13. AMLODIPINE [Concomitant]
     Active Substance: AMLODIPINE BESYLATE
     Indication: Hypertension
     Dosage: 10.0MG UNKNOWN
  14. FUROSEMIDE [Concomitant]
     Active Substance: FUROSEMIDE
     Dosage: AS REQUIRED
  15. ZETIA [Concomitant]
     Active Substance: EZETIMIBE
     Indication: Blood cholesterol increased
  16. ASPIRIN [Concomitant]
     Active Substance: ASPIRIN
  17. GABAPENTIN [Concomitant]
     Active Substance: GABAPENTIN
     Indication: Intervertebral disc degeneration
     Dosage: 300.0MG UNKNOWN
  18. OSENI [Concomitant]
     Active Substance: ALOGLIPTIN BENZOATE\PIOGLITAZONE HYDROCHLORIDE
     Indication: Diabetes mellitus
     Dosage: 25.0MG UNKNOWN
  19. INVOKANA [Concomitant]
     Active Substance: CANAGLIFLOZIN
     Indication: Diabetes mellitus
     Dosage: 300.0MG UNKNOWN
  20. CELEXA [Concomitant]
     Active Substance: CITALOPRAM HYDROBROMIDE
     Dosage: 40.0MG UNKNOWN
  21. DEXILANT [Concomitant]
     Active Substance: DEXLANSOPRAZOLE
     Indication: Gastrooesophageal reflux disease
     Dosage: 60.0MG UNKNOWN
  22. ALREX FUS [Concomitant]
     Indication: Intraocular pressure test abnormal
  23. ALPHAGAN PSOL [Concomitant]
     Indication: Intraocular pressure test abnormal

REACTIONS (3)
  - Generalised oedema [Recovered/Resolved]
  - Dyspnoea exertional [Unknown]
  - Weight increased [Unknown]

NARRATIVE: CASE EVENT DATE: 20200712
